FAERS Safety Report 8374599-7 (Version None)
Quarter: 2012Q2

REPORT INFORMATION
  Report Type: 
  Country: None (occurrence: None)
  Receive Date: 20120521
  Receipt Date: 20120508
  Transmission Date: 20120825
  Serious: Yes (Other)
  Sender: FDA-Public Use
  Company Number: JP-JNJFOC-20120414020

PATIENT
  Age: 70 Year
  Sex: Male

DRUGS (2)
  1. RHEUMATREX [Suspect]
     Indication: POLYCHONDRITIS
     Route: 048
  2. REMICADE [Suspect]
     Indication: POLYCHONDRITIS
     Route: 042

REACTIONS (1)
  - TUBERCULOSIS [None]
